FAERS Safety Report 4336033-3 (Version None)
Quarter: 2004Q2

REPORT INFORMATION
  Report Type: 
  Country: None (occurrence: None)
  Receive Date: 20040406
  Receipt Date: 20040326
  Transmission Date: 20050107
  Serious: Yes (Hospitalization)
  Sender: FDA-Public Use
  Company Number: 2004206389DE

PATIENT
  Age: 63 Year
  Sex: Female

DRUGS (3)
  1. EPIRUBICIN [Suspect]
     Indication: BREAST CANCER
     Dosage: 102.3 MG, IV
     Route: 042
     Dates: start: 20030206
  2. FLUOROURACIL [Suspect]
     Indication: BREAST CANCER
     Dosage: 852.2 MG, IV
     Route: 042
     Dates: start: 20030206
  3. CYCLOPHOSPHAMIDE [Suspect]
     Indication: BREAST CANCER
     Dosage: 150 MG, ORAL
     Route: 048
     Dates: start: 20030206

REACTIONS (6)
  - CHEST PAIN [None]
  - COUGH [None]
  - DYSPNOEA [None]
  - HAEMOGLOBIN DECREASED [None]
  - LEUKOPENIA [None]
  - PYREXIA [None]
